FAERS Safety Report 9842247 (Version 1)
Quarter: 2014Q1

REPORT INFORMATION
  Report Type: Spontaneous
  Country: IT (occurrence: IT)
  Receive Date: 20140124
  Receipt Date: 20140124
  Transmission Date: 20141002
  Serious: Yes (Hospitalization)
  Sender: FDA-Public Use
  Company Number: IT-GLAXOSMITHKLINE-B0962899A

PATIENT
  Sex: Male

DRUGS (8)
  1. AMOXICILLINE / CLAVULANIC ACID [Suspect]
     Indication: PRODUCT USED FOR UNKNOWN INDICATION
     Dosage: 50MGK TWICE PER DAY
     Route: 065
  2. CEFTAZIDIME [Suspect]
     Indication: PRODUCT USED FOR UNKNOWN INDICATION
     Route: 065
  3. AMIKACIN [Suspect]
     Indication: PNEUMOCOCCAL SEPSIS
     Dosage: 10MGK TWICE PER DAY
     Route: 065
  4. AMPICILLIN [Suspect]
     Indication: PNEUMOCOCCAL SEPSIS
     Dosage: 25MGK THREE TIMES PER DAY
     Route: 065
  5. BECLOMETASONE [Suspect]
     Indication: PRODUCT USED FOR UNKNOWN INDICATION
     Dosage: .4MG SIX TIMES PER DAY
     Route: 055
  6. TEICOPLANIN [Suspect]
     Indication: PRODUCT USED FOR UNKNOWN INDICATION
     Route: 065
  7. NITRIC OXIDE [Concomitant]
     Route: 055
  8. SALBUTAMOL [Concomitant]
     Route: 065

REACTIONS (1)
  - Candida pneumonia [Recovered/Resolved]
